FAERS Safety Report 6035181-X (Version None)
Quarter: 2009Q1

REPORT INFORMATION
  Report Type: 
  Country: None (occurrence: None)
  Receive Date: 20090109
  Receipt Date: 20081229
  Transmission Date: 20090719
  Serious: Yes (Other)
  Sender: FDA-Public Use
  Company Number: GXKR2008FR12298

PATIENT
  Age: 40 Year
  Sex: Female

DRUGS (1)
  1. SULFAMETHOXAZOLE AND TRIMETHOPRIM [Suspect]
     Indication: VAGINAL INFECTION

REACTIONS (7)
  - ACUTE FEBRILE NEUTROPHILIC DERMATOSIS [None]
  - CHEILITIS [None]
  - CONJUNCTIVITIS [None]
  - COUGH [None]
  - INFLAMMATION [None]
  - OEDEMA [None]
  - RASH PUSTULAR [None]
